FAERS Safety Report 7051466-2 (Version None)
Quarter: 2010Q4

REPORT INFORMATION
  Report Type: 
  Country: None (occurrence: None)
  Receive Date: 20101019
  Receipt Date: 20101008
  Transmission Date: 20110411
  Serious: Yes (Hospitalization, Congenital Anomaly)
  Sender: FDA-Public Use
  Company Number: A0887174A

PATIENT
  Sex: Female
  Weight: 2.8 kg

DRUGS (3)
  1. PAXIL [Suspect]
     Indication: DEPRESSION
     Dosage: 30MG PER DAY
     Dates: start: 20010117
  2. FERROUS SULFATE [Concomitant]
  3. PRENATAL VITAMINS [Concomitant]

REACTIONS (7)
  - AORTIC STENOSIS [None]
  - BICUSPID AORTIC VALVE [None]
  - COARCTATION OF THE AORTA [None]
  - CYANOSIS [None]
  - DRUG EXPOSURE DURING PREGNANCY [None]
  - PATENT DUCTUS ARTERIOSUS [None]
  - VENTRICULAR SEPTAL DEFECT [None]
